FAERS Safety Report 25047806 (Version 3)
Quarter: 2025Q1

REPORT INFORMATION
  Report Type: Spontaneous
  Country: US (occurrence: US)
  Receive Date: 20250306
  Receipt Date: 20250313
  Transmission Date: 20250409
  Serious: No
  Sender: NOVARTIS
  Company Number: US-002147023-NVSC2025US038456

PATIENT
  Sex: Male

DRUGS (2)
  1. KESIMPTA [Suspect]
     Active Substance: OFATUMUMAB
     Indication: Product used for unknown indication
     Dosage: UNK, QMO (20MG/0.4ML)
     Route: 065
  2. VITAMINS [Concomitant]
     Active Substance: VITAMINS
     Indication: Product used for unknown indication
     Route: 065

REACTIONS (4)
  - Device malfunction [Unknown]
  - Needle issue [Unknown]
  - Accidental exposure to product [Unknown]
  - Device leakage [Unknown]
